FAERS Safety Report 6388982-2 (Version None)
Quarter: 2009Q4

REPORT INFORMATION
  Report Type: 
  Country: None (occurrence: None)
  Receive Date: 20091001
  Receipt Date: 20090922
  Transmission Date: 20100525
  Serious: Yes (Disabling)
  Sender: FDA-Public Use
  Company Number: ADR27742009

PATIENT
  Age: 63 Year
  Sex: Male

DRUGS (10)
  1. RAMIPRIL [Suspect]
     Dosage: 10 MG, ORAL
     Route: 048
     Dates: start: 20010510, end: 20020222
  2. ATENOLOL [Concomitant]
  3. SODIUM AUROTHIOMALATE (50 MG) [Concomitant]
  4. AMLODIPINE [Concomitant]
  5. ASPIRIN [Concomitant]
  6. ATORVASTATIN CALCIUM [Concomitant]
  7. CLOPIDOGREL [Concomitant]
  8. ISOSORBIDE MONBNITRATE (120 MG) [Concomitant]
  9. NICORANDIL (20 MG) [Concomitant]
  10. PREDNISOLONE [Concomitant]

REACTIONS (7)
  - ANGINA PECTORIS [None]
  - DRUG INTERACTION [None]
  - HYPOTENSION [None]
  - MALAISE [None]
  - NAUSEA [None]
  - NITRITOID REACTION [None]
  - SYNCOPE [None]
